FAERS Safety Report 16895940 (Version 1)
Quarter: 2019Q4

REPORT INFORMATION
  Report Type: Spontaneous
  Country: US (occurrence: US)
  Receive Date: 20191008
  Receipt Date: 20191008
  Transmission Date: 20200122
  Serious: No
  Sender: FDA-Public Use
  Company Number: US-PERRIGO-19US008887

PATIENT
  Sex: Male
  Weight: 79.37 kg

DRUGS (4)
  1. IMIQUIMOD. [Suspect]
     Active Substance: IMIQUIMOD
     Dosage: UNKNOWN, QOD  (1 DOSES)
     Route: 061
     Dates: start: 2015, end: 2015
  2. IMIQUIMOD. [Suspect]
     Active Substance: IMIQUIMOD
     Indication: BASAL CELL CARCINOMA
     Dosage: UNKNOWN, QOD (TOTAL 36 DOSES)
     Route: 061
     Dates: start: 2012, end: 2012
  3. IMIQUIMOD. [Suspect]
     Active Substance: IMIQUIMOD
     Dosage: UNKNOWN,QOD
     Route: 061
     Dates: start: 20190716
  4. ANTIHYPERTENSIVES [Concomitant]
     Active Substance: UNSPECIFIED INGREDIENT
     Indication: HYPERTENSION
     Dosage: UNK
     Route: 065

REACTIONS (5)
  - Application site pain [Recovered/Resolved]
  - Inappropriate schedule of product administration [Not Recovered/Not Resolved]
  - Product administered at inappropriate site [Not Recovered/Not Resolved]
  - Drug ineffective [Unknown]
  - Application site erythema [Recovered/Resolved]

NARRATIVE: CASE EVENT DATE: 2012
